FAERS Safety Report 6289121-9 (Version None)
Quarter: 2009Q3

REPORT INFORMATION
  Report Type: 
  Country: None (occurrence: None)
  Receive Date: 20090729
  Receipt Date: 20090716
  Transmission Date: 20100115
  Serious: Yes (Hospitalization)
  Sender: FDA-Public Use
  Company Number: FR-ASTRAZENECA-2009SE05042

PATIENT
  Age: 22223 Day
  Sex: Male

DRUGS (21)
  1. MOPRAL ORAL [Suspect]
     Route: 048
     Dates: end: 20090206
  2. MOPRAL ORAL [Suspect]
     Route: 048
     Dates: start: 20090212
  3. MOPRAL IV [Suspect]
     Route: 042
     Dates: start: 20090206, end: 20090212
  4. ARANESP [Suspect]
     Route: 058
     Dates: start: 20090207
  5. HUMALOG [Suspect]
     Route: 058
     Dates: start: 20090207
  6. BACTRIM [Suspect]
     Route: 048
     Dates: start: 20090107
  7. DEROXAT [Suspect]
     Route: 048
     Dates: start: 20090107
  8. SOLU-MEDROL [Suspect]
     Route: 042
     Dates: start: 20090206, end: 20090212
  9. MAGNE B6 [Concomitant]
     Route: 048
     Dates: start: 20090128
  10. IMUREL [Concomitant]
     Route: 048
     Dates: end: 20090206
  11. IMUREL [Concomitant]
     Route: 042
     Dates: start: 20090206, end: 20090212
  12. NEORAL [Concomitant]
     Route: 048
     Dates: end: 20090206
  13. NEORAL [Concomitant]
     Route: 042
     Dates: start: 20090206, end: 20090212
  14. DIFFU K [Concomitant]
     Dates: start: 20090107
  15. TEMERIT [Concomitant]
     Dates: end: 20090202
  16. IMODIUM [Concomitant]
     Dates: end: 20090204
  17. NEXIUM [Concomitant]
     Dates: end: 20090206
  18. SOLUPRED [Concomitant]
  19. SPECLAFOLDINE [Concomitant]
     Dates: end: 20090131
  20. XANAX [Concomitant]
     Dates: end: 20090110
  21. PRIMPERAN [Concomitant]
     Dates: start: 20090110, end: 20090207

REACTIONS (1)
  - HEPATITIS [None]
